FAERS Safety Report 8401704 (Version 5)
Quarter: 2012Q4

REPORT INFORMATION
  Report Type: 
  Country: US (occurrence: US)
  Receive Date: 20120213
  Receipt Date: 20121120
  Transmission Date: 20130627
  Serious: Yes (Hospitalization)
  Sender: FDA-Public Use
  Company Number: US-BIOGENIDEC-2012BI004624

PATIENT
  Age: 71 Year
  Sex: Male

DRUGS (2)
  1. AVONEX [Suspect]
     Indication: MULTIPLE SCLEROSIS
     Route: 030
     Dates: start: 201109, end: 20120130
  2. AZULFIDINE [Concomitant]
     Indication: COLITIS ULCERATIVE

REACTIONS (8)
  - Coronary artery occlusion [Recovered/Resolved]
  - Cardiac valve disease [Recovered/Resolved]
  - Haematochezia [Unknown]
  - Dyspnoea [Recovered/Resolved]
  - Diarrhoea [Recovered/Resolved]
  - Fatigue [Unknown]
  - Anaemia [Unknown]
  - Influenza like illness [Recovered/Resolved]
